FAERS Safety Report 9374600 (Version 3)
Quarter: 2013Q3

REPORT INFORMATION
  Report Type: Report from Study
  Country: CA (occurrence: CA)
  Receive Date: 20130628
  Receipt Date: 20130912
  Transmission Date: 20140515
  Serious: Yes (Other)
  Sender: FDA-Public Use
  Company Number: CA-JNJFOC-20130614442

PATIENT
  Age: 68 Year
  Sex: Female
  Weight: 58.2 kg

DRUGS (15)
  1. REMICADE [Suspect]
     Indication: RHEUMATOID ARTHRITIS
     Route: 042
  2. REMICADE [Suspect]
     Indication: RHEUMATOID ARTHRITIS
     Route: 042
     Dates: start: 20070828, end: 20130618
  3. PREDNISONE [Concomitant]
     Route: 065
  4. ACTONEL [Concomitant]
     Route: 065
  5. IRON [Concomitant]
     Route: 065
  6. FOLIC ACID [Concomitant]
     Route: 065
  7. VITAMIN D [Concomitant]
     Route: 065
  8. MOBICOX [Concomitant]
     Route: 065
  9. COVERSYL [Concomitant]
     Route: 065
  10. ASA [Concomitant]
     Route: 065
  11. HYDROMORPH CONTIN [Concomitant]
     Route: 065
  12. METHOTREXATE [Concomitant]
     Route: 065
  13. PREVACID [Concomitant]
     Route: 065
  14. GABAPENTIN [Concomitant]
     Route: 065
  15. FUROSEMIDE [Concomitant]
     Route: 065

REACTIONS (2)
  - Lung neoplasm malignant [Unknown]
  - Wound infection [Unknown]
